FAERS Safety Report 6150967-9 (Version None)
Quarter: 2009Q2

REPORT INFORMATION
  Report Type: 
  Country: None (occurrence: None)
  Receive Date: 20090410
  Receipt Date: 20090331
  Transmission Date: 20091009
  Serious: Yes (Death, Other)
  Sender: FDA-Public Use
  Company Number: GB-RANBAXY-2009RR-23178

PATIENT
  Age: 68 Year
  Sex: Male
  Weight: 90 kg

DRUGS (11)
  1. PARACETAMOL [Suspect]
  2. CODEINE [Suspect]
  3. PAROXETINE HCL [Suspect]
  4. CANDESARTAN [Concomitant]
     Dosage: 16 MG, QD
  5. CETIRIZINE [Concomitant]
     Dosage: 10 MG, QD
     Route: 048
  6. DIAZEPAM [Concomitant]
     Dosage: 2 MG, QID
     Route: 048
  7. MOMETASONE FUROATE [Concomitant]
     Dosage: 50 UG, BID
     Route: 045
  8. OMEPRAZOLE [Concomitant]
     Dosage: 10 MG, QD
     Route: 048
  9. SIMVASTATIN [Concomitant]
     Dosage: 80 MG, QD
  10. VENLAFAXINE HCL [Concomitant]
     Dosage: 150 MG, UNK
     Dates: start: 20090226, end: 20090305
  11. ZOPICLONE [Concomitant]
     Dosage: 7.5 MG, QD

REACTIONS (2)
  - DEATH [None]
  - OVERDOSE [None]
